FAERS Safety Report 12532078 (Version 2)
Quarter: 2016Q3

REPORT INFORMATION
  Report Type: Spontaneous
  Country: US (occurrence: US)
  Receive Date: 20160706
  Receipt Date: 20160823
  Transmission Date: 20161109
  Serious: Yes (Hospitalization)
  Sender: FDA-Public Use
  Company Number: US-GLAXOSMITHKLINE-US2016094677

PATIENT
  Age: 35 Year
  Sex: Female

DRUGS (2)
  1. NODOZ [Suspect]
     Active Substance: CAFFEINE
     Dosage: UNK
  2. NODOZ [Suspect]
     Active Substance: CAFFEINE
     Indication: HYPERVIGILANCE
     Dosage: UNK
     Route: 048
     Dates: start: 201604

REACTIONS (8)
  - Emergency care [Unknown]
  - Diarrhoea [Unknown]
  - Abdominal pain upper [Unknown]
  - Malaise [Unknown]
  - Fatigue [Recovered/Resolved]
  - Rash [Not Recovered/Not Resolved]
  - Dehydration [Recovered/Resolved]
  - Hypersensitivity [Unknown]

NARRATIVE: CASE EVENT DATE: 201606
